FAERS Safety Report 5115402-8 (Version None)
Quarter: 2006Q3

REPORT INFORMATION
  Report Type: 
  Country: None (occurrence: None)
  Receive Date: 20060922
  Receipt Date: 20060909
  Transmission Date: 20061208
  Serious: Yes (Other)
  Sender: FDA-Public Use
  Company Number: 2006111055

PATIENT
  Sex: Female

DRUGS (1)
  1. LYRICA [Suspect]
     Dosage: ORAL
     Route: 048

REACTIONS (3)
  - FALL [None]
  - HYPERTENSION [None]
  - TACHYCARDIA [None]
